FAERS Safety Report 7000250-4 (Version None)
Quarter: 2010Q3

REPORT INFORMATION
  Report Type: 
  Country: None (occurrence: None)
  Receive Date: 20100920
  Receipt Date: 20070720
  Transmission Date: 20110219
  Serious: Yes (Hospitalization)
  Sender: FDA-Public Use
  Company Number: US-ASTRAZENECA-2006UW12290

PATIENT
  Age: 17316 Day
  Sex: Male
  Weight: 145.1 kg

DRUGS (26)
  1. SEROQUEL [Suspect]
     Indication: DEPRESSION
     Dosage: 25-400 MG
     Route: 048
     Dates: start: 20040310
  2. SEROQUEL [Suspect]
     Indication: BIPOLAR DISORDER
     Dosage: 25-400 MG
     Route: 048
     Dates: start: 20040310
  3. SEROQUEL [Suspect]
     Route: 048
  4. SEROQUEL [Suspect]
     Route: 048
  5. ZYPREXA [Suspect]
  6. CLOZARIL [Concomitant]
  7. THORAZINE [Concomitant]
  8. RISPERIDONE [Concomitant]
     Dosage: 3 MG EVERY NIGHT AND 1 MG IN THE MORNING, 1 MG ONE-HALF MORNING,2 MG ONE-HALF AT BEDTIME
     Route: 048
     Dates: start: 20011109
  9. CLOPIDOGREL BISULFATE [Concomitant]
     Indication: ANTICOAGULANT THERAPY
     Route: 048
     Dates: start: 20011109
  10. CELEXA [Concomitant]
     Dates: start: 20011109
  11. ATENOLOL [Concomitant]
     Route: 048
     Dates: start: 20040310
  12. FOLIC ACID [Concomitant]
     Route: 048
     Dates: start: 20040318
  13. GLYBURIDE [Concomitant]
     Indication: DIABETES MELLITUS
     Dosage: 5MG ONE TWO TIMES A DAY, 7.5MG ONE TWO TIMES A DAY
     Route: 048
     Dates: start: 20040310
  14. MORPHINE SULPHATE CR [Concomitant]
     Indication: PAIN
     Dosage: 30MG ONE EVERY 12 HOURS, 60MG ONE EVERY 12 HOURS
     Route: 048
     Dates: start: 20040310
  15. SIMVASTATIN [Concomitant]
     Indication: BLOOD CHOLESTEROL
     Dosage: 80MG TAB TAKE ONE-HALF TABLET BY MOUTH AT BEDTIME
     Route: 048
     Dates: start: 20040310
  16. NPH INSULIN [Concomitant]
     Dosage: 10 UNITS SQ IN MORNING
     Dates: start: 20050522
  17. GABAPENTIN [Concomitant]
     Dosage: 300 MG CAP TAKE ONE CAPSULE BY MOUTH THREE ACTIVE TIMES A DAY
     Route: 048
     Dates: start: 20040310
  18. BUPROPION [Concomitant]
     Dosage: 150MG SA TAB TAKE ONE TABLET BY MOUTH DAILY IN THE MORNING
     Route: 048
     Dates: start: 20040318
  19. CLONAZEPAM [Concomitant]
     Dosage: 1MG TAB TAKE TWO TABLETS BY MOUTH AT BEDTIME
     Route: 048
     Dates: start: 20040318
  20. ZOLOFT [Concomitant]
     Dates: start: 20001211
  21. DILTIAZEM CD [Concomitant]
     Dates: start: 20001211
  22. LOPRESSOR [Concomitant]
     Dates: start: 20001211
  23. LISINOPRIL [Concomitant]
     Dates: start: 20001211
  24. ZOCOR [Concomitant]
     Indication: HYPERLIPIDAEMIA
     Dates: start: 20001211
  25. TRILEPTAL [Concomitant]
     Indication: IMPULSE-CONTROL DISORDER
     Dates: start: 20040514
  26. TRILEPTAL [Concomitant]
     Indication: AFFECTIVE DISORDER
     Dates: start: 20040514

REACTIONS (2)
  - DIABETES MELLITUS [None]
  - DIABETES MELLITUS INADEQUATE CONTROL [None]
